FAERS Safety Report 23603529 (Version 5)
Quarter: 2025Q1

REPORT INFORMATION
  Report Type: Spontaneous
  Country: ES (occurrence: ES)
  Receive Date: 20240307
  Receipt Date: 20250311
  Transmission Date: 20250408
  Serious: Yes (Life-Threatening, Other)
  Sender: CELLTRION
  Company Number: ES-CELLTRION INC.-2024ES005340

PATIENT

DRUGS (6)
  1. INFLIXIMAB [Suspect]
     Active Substance: INFLIXIMAB
     Indication: Crohn^s disease
     Route: 065
     Dates: start: 2013, end: 2016
  2. INFLIXIMAB [Suspect]
     Active Substance: INFLIXIMAB
     Route: 065
     Dates: start: 2016, end: 2020
  3. INFLIXIMAB [Suspect]
     Active Substance: INFLIXIMAB
     Dates: start: 2013
  4. INFLIXIMAB [Suspect]
     Active Substance: INFLIXIMAB
     Route: 065
     Dates: start: 2016
  5. REMICADE [Suspect]
     Active Substance: INFLIXIMAB
     Indication: Crohn^s disease
     Route: 042
     Dates: start: 2013
  6. AZATHIOPRINE [Concomitant]
     Active Substance: AZATHIOPRINE
     Indication: Crohn^s disease
     Route: 065
     Dates: start: 2013, end: 2016

REACTIONS (1)
  - IgA nephropathy [Recovering/Resolving]

NARRATIVE: CASE EVENT DATE: 20200401
